FAERS Safety Report 9086643 (Version 1)
Quarter: 2013Q1

REPORT INFORMATION
  Report Type: Report from Study
  Country: US (occurrence: US)
  Receive Date: 20130130
  Receipt Date: 20130130
  Transmission Date: 20140127
  Serious: No
  Sender: FDA-Public Use
  Company Number: US-ABBOTT-12P-163-0988741-00

PATIENT
  Age: 45 Year
  Sex: Female

DRUGS (9)
  1. HUMIRA [Suspect]
     Indication: CROHN^S DISEASE
     Dates: start: 20120713
  2. SYNTHROID [Concomitant]
     Indication: HYPOTHYROIDISM
     Dosage: DAILY
  3. YAZ [Concomitant]
     Indication: CONTRACEPTION
     Dosage: PILLS
  4. CELEXA GENERIC [Concomitant]
     Indication: DEPRESSION
     Dosage: DAILY
  5. XANAX [Concomitant]
     Indication: ANXIETY
  6. ADVAIR [Concomitant]
     Indication: ASTHMA
     Dosage: 150/50, 1 PUFF DAILY
  7. VENTOLIN [Concomitant]
     Indication: ASTHMA
  8. FERROUS SULFATE [Concomitant]
     Indication: ANAEMIA
  9. NEXIUM [Concomitant]
     Indication: GASTROOESOPHAGEAL REFLUX DISEASE
     Dosage: DAILY

REACTIONS (4)
  - Fatigue [Not Recovered/Not Resolved]
  - Diarrhoea [Not Recovered/Not Resolved]
  - Hypersomnia [Not Recovered/Not Resolved]
  - Arthralgia [Not Recovered/Not Resolved]
